FAERS Safety Report 25155592 (Version 1)
Quarter: 2025Q2

REPORT INFORMATION
  Report Type: Spontaneous
  Country: JP (occurrence: JP)
  Receive Date: 20250403
  Receipt Date: 20250403
  Transmission Date: 20250717
  Serious: Yes (Life-Threatening, Hospitalization, Disabling)
  Sender: JOHNSON AND JOHNSON
  Company Number: JP-MLMSERVICE-20250318-PI444407-00285-1

PATIENT
  Age: 79 Year
  Sex: Male

DRUGS (10)
  1. RISPERIDONE [Suspect]
     Active Substance: RISPERIDONE
     Indication: Dementia with Lewy bodies
     Route: 065
     Dates: start: 20230829, end: 2023
  2. RISPERIDONE [Suspect]
     Active Substance: RISPERIDONE
  3. RISPERIDONE [Suspect]
     Active Substance: RISPERIDONE
  4. RISPERIDONE [Suspect]
     Active Substance: RISPERIDONE
  5. RISPERIDONE [Suspect]
     Active Substance: RISPERIDONE
  6. RISPERIDONE [Suspect]
     Active Substance: RISPERIDONE
  7. FLUMAZENIL [Concomitant]
     Active Substance: FLUMAZENIL
  8. DANTROLENE [Concomitant]
     Active Substance: DANTROLENE
  9. ROCURONIUM [Concomitant]
     Active Substance: ROCURONIUM BROMIDE
  10. FLUMAZENIL [Concomitant]
     Active Substance: FLUMAZENIL

REACTIONS (3)
  - Neuroleptic malignant syndrome [Recovering/Resolving]
  - Hypoalbuminaemia [Unknown]
  - Pleural effusion [Recovering/Resolving]

NARRATIVE: CASE EVENT DATE: 20230101
